FAERS Safety Report 7770900-3 (Version None)
Quarter: 2011Q3

REPORT INFORMATION
  Report Type: 
  Country: None (occurrence: None)
  Receive Date: 20110922
  Receipt Date: 20100303
  Transmission Date: 20111222
  Serious: Yes (Other)
  Sender: FDA-Public Use
  Company Number: US-ASTRAZENECA-2009SE17914

PATIENT
  Sex: Female

DRUGS (2)
  1. SEROQUEL [Suspect]
     Route: 048
     Dates: start: 19980101
  2. TRAZODONE HYDROCHLORIDE [Concomitant]
     Dosage: 100 TO 150 MG AT NIGHT
     Dates: start: 19980101

REACTIONS (2)
  - DIABETES MELLITUS [None]
  - KETOSIS [None]
